FAERS Safety Report 5155523-7 (Version None)
Quarter: 2006Q4

REPORT INFORMATION
  Report Type: 
  Country: None (occurrence: None)
  Receive Date: 20061114
  Receipt Date: 20061101
  Transmission Date: 20070319
  Serious: Yes (Hospitalization)
  Sender: FDA-Public Use
  Company Number: 2006027251

PATIENT
  Age: 48 Year
  Sex: Male
  Weight: 80.7403 kg

DRUGS (14)
  1. CELEBREX [Suspect]
     Dosage: 100 MG, 2 IN 1 D, ORAL
     Route: 048
     Dates: start: 20060110, end: 20060215
  2. SUTENT            (SUNITINIB MALATE)         SU-011,248 [Suspect]
     Indication: RENAL CELL CARCINOMA STAGE UNSPECIFIED
     Dosage: 50 MG (50 MG, 1 IN 1 D), ORAL
     Route: 048
     Dates: start: 20060124
  3. METHADONE HCL [Suspect]
     Dosage: 40 MG (20 MG, 2 IN 1 D), ORAL
     Route: 048
     Dates: start: 20060110
  4. PERCOCET [Suspect]
     Dosage: 2 TABLETS (1 IN 1 D HR), ORAL
     Route: 048
     Dates: start: 20060110, end: 20060215
  5. BACLOFEN [Suspect]
     Dosage: 10 MG, 3 IN 1 D, ORAL
     Route: 048
     Dates: start: 20060110, end: 20060215
  6. MINOCYCLINE HCL [Concomitant]
  7. LEXAPRO [Concomitant]
  8. PROTONIX [Concomitant]
  9. AMBIEN [Concomitant]
  10. NEURONTIN [Concomitant]
  11. COMPAZINE [Concomitant]
  12. SENNA (SENNA) [Concomitant]
  13. LACTULOSE [Concomitant]
  14. COLACE     (DOCUSATE SODIUM) [Concomitant]

REACTIONS (6)
  - CONFUSIONAL STATE [None]
  - DISORIENTATION [None]
  - FATIGUE [None]
  - HYPERTENSION [None]
  - LETHARGY [None]
  - TOXIC INDUCED ENCEPHALOPATHY [None]
